FAERS Safety Report 6259567-3 (Version None)
Quarter: 2009Q3

REPORT INFORMATION
  Report Type: 
  Country: None (occurrence: None)
  Receive Date: 20090706
  Receipt Date: 20090706
  Transmission Date: 20100115
  Serious: No
  Sender: FDA-Public Use
  Company Number: None

PATIENT
  Age: 84 Year
  Sex: Female

DRUGS (9)
  1. COLD-EZE LOZENGES [Suspect]
     Indication: IMMUNE ENHANCEMENT THERAPY
     Dosage: NOT DAILY
     Route: 058
     Dates: start: 20090502, end: 20090509
  2. COLD-EZE LOZENGES [Suspect]
     Indication: VIRAL PHARYNGITIS
     Dosage: NOT DAILY
     Route: 058
     Dates: start: 20090502, end: 20090509
  3. ISOSORBIDE MONONITRATE [Concomitant]
  4. ASPIRIN [Concomitant]
  5. METOPROLOL TARTRATE [Concomitant]
  6. BENAZEPRIL [Concomitant]
  7. HUMULIN N [Concomitant]
  8. HUMULIN R [Concomitant]
  9. GARLIC THYROID [Concomitant]

REACTIONS (2)
  - ASTHENIA [None]
  - MUSCLE SPASMS [None]
